FAERS Safety Report 5409556-3 (Version None)
Quarter: 2007Q3

REPORT INFORMATION
  Report Type: 
  Country: None (occurrence: None)
  Receive Date: 20070807
  Receipt Date: 20070807
  Transmission Date: 20080115
  Serious: No
  Sender: FDA-Public Use
  Company Number: None

PATIENT
  Sex: Female
  Weight: 70.7 kg

DRUGS (2)
  1. FLUOROURACIL [Suspect]
     Dosage: 712 MG
     Dates: end: 20070711
  2. ELOXATIN [Suspect]
     Dosage: 151 MG
     Dates: end: 20070711

REACTIONS (1)
  - NEUTROPENIA [None]
